FAERS Safety Report 23306755 (Version 10)
Quarter: 2025Q2

REPORT INFORMATION
  Report Type: Report from Study
  Country: US (occurrence: US)
  Receive Date: 20231218
  Receipt Date: 20250410
  Transmission Date: 20250716
  Serious: Yes (Hospitalization)
  Sender: INSMED
  Company Number: US-INSMED, INC.-2023-04731-US

PATIENT
  Sex: Female

DRUGS (4)
  1. ARIKAYCE [Suspect]
     Active Substance: AMIKACIN
     Indication: Mycobacterial infection
     Dosage: 590 MILLIGRAM, QD
     Route: 055
     Dates: start: 2023, end: 2023
  2. ARIKAYCE [Suspect]
     Active Substance: AMIKACIN
     Dosage: 590 MILLIGRAM, QD
     Route: 055
  3. ARIKAYCE [Suspect]
     Active Substance: AMIKACIN
     Dosage: 590 MILLIGRAM, QD
     Route: 055
     Dates: start: 20241222, end: 20241228
  4. ARIKAYCE [Suspect]
     Active Substance: AMIKACIN
     Dosage: 590 MILLIGRAM, QD
     Route: 055
     Dates: start: 202412

REACTIONS (9)
  - Hospitalisation [Unknown]
  - Hospitalisation [Unknown]
  - Blood pressure increased [Unknown]
  - Influenza like illness [Unknown]
  - Ill-defined disorder [Unknown]
  - Therapy interrupted [Unknown]
  - Product dose omission issue [Unknown]
  - Intentional dose omission [Unknown]
  - Incorrect product administration duration [Unknown]
